FAERS Safety Report 19201023 (Version 1)
Quarter: 2021Q2

REPORT INFORMATION
  Report Type: Spontaneous
  Country: GB (occurrence: GB)
  Receive Date: 20210430
  Receipt Date: 20210430
  Transmission Date: 20210717
  Serious: Yes (Hospitalization)
  Sender: FDA-Public Use
  Company Number: GB-VERTEX PHARMACEUTICALS-2021-006698

PATIENT
  Sex: Male

DRUGS (1)
  1. KAFTRIO [Suspect]
     Active Substance: ELEXACAFTOR\IVACAFTOR\TEZACAFTOR
     Indication: CYSTIC FIBROSIS
     Dosage: IVA 75 MG/ TEZA 50 MG/ELEXA 100 MG, FREQ UNK
     Route: 048
     Dates: start: 202008

REACTIONS (1)
  - Lower respiratory tract infection [Unknown]
